FAERS Safety Report 12641201 (Version 1)
Quarter: 2016Q3

REPORT INFORMATION
  Report Type: Spontaneous
  Country: US (occurrence: US)
  Receive Date: 20160810
  Receipt Date: 20160810
  Transmission Date: 20161109
  Serious: No
  Sender: FDA-Public Use
  Company Number: US-PFIZER INC-2016348791

PATIENT
  Sex: Female
  Weight: 52 kg

DRUGS (1)
  1. PREMARIN [Suspect]
     Active Substance: ESTROGENS, CONJUGATED
     Dosage: UNK
     Dates: start: 1989

REACTIONS (5)
  - Pain in extremity [Unknown]
  - Fluid retention [Unknown]
  - Vein disorder [Unknown]
  - Drug ineffective [Unknown]
  - Peripheral swelling [Unknown]
